FAERS Safety Report 20502825 (Version 1)
Quarter: 2022Q1

REPORT INFORMATION
  Report Type: Spontaneous
  Country: US (occurrence: None)
  Receive Date: 20220222
  Receipt Date: 20220222
  Transmission Date: 20220423
  Serious: Yes (Death, Hospitalization)
  Sender: FDA-Public Use
  Company Number: None

PATIENT
  Age: 8 Year
  Sex: Male
  Weight: 22.7 kg

DRUGS (5)
  1. CYTARABINE [Suspect]
     Active Substance: CYTARABINE
     Dates: end: 20220102
  2. ZINECARD [Suspect]
     Active Substance: DEXRAZOXANE HYDROCHLORIDE
     Dates: end: 20220104
  3. HYDROCORTISONE [Suspect]
     Active Substance: HYDROCORTISONE
     Dates: end: 20211229
  4. METHOTREXATE [Suspect]
     Active Substance: METHOTREXATE
     Dates: end: 20211229
  5. MITOXANTRONE HYDROCHLORIDE [Suspect]
     Active Substance: MITOXANTRONE HYDROCHLORIDE
     Dates: end: 20220104

REACTIONS (22)
  - Tachycardia [None]
  - Tachypnoea [None]
  - Depressed level of consciousness [None]
  - Blood culture positive [None]
  - Alpha haemolytic streptococcal infection [None]
  - Blood pressure abnormal [None]
  - Abdominal distension [None]
  - Gastrointestinal necrosis [None]
  - Streptococcal sepsis [None]
  - Hypovolaemic shock [None]
  - Disease complication [None]
  - Intestinal perforation [None]
  - Exposure to SARS-CoV-2 [None]
  - COVID-19 [None]
  - Thrombotic microangiopathy [None]
  - Haemolysis [None]
  - Thrombocytopenia [None]
  - Haemoglobin decreased [None]
  - Blood bilirubin increased [None]
  - Red blood cell schistocytes present [None]
  - Blood lactate dehydrogenase increased [None]
  - Haptoglobin abnormal [None]

NARRATIVE: CASE EVENT DATE: 20220115
